FAERS Safety Report 7867979-7 (Version None)
Quarter: 2011Q4

REPORT INFORMATION
  Report Type: 
  Country: None (occurrence: None)
  Receive Date: 20111028
  Receipt Date: 20100410
  Transmission Date: 20120403
  Serious: No
  Sender: FDA-Public Use
  Company Number: US-BAYER-201020387NA

PATIENT
  Sex: Female

DRUGS (1)
  1. AVELOX [Suspect]
     Dosage: 400 MG, UNK

REACTIONS (3)
  - NAUSEA [None]
  - INFLUENZA LIKE ILLNESS [None]
  - TENDON PAIN [None]
